FAERS Safety Report 6450473-8 (Version None)
Quarter: 2009Q4

REPORT INFORMATION
  Report Type: 
  Country: None (occurrence: None)
  Receive Date: 20091116
  Receipt Date: 20090716
  Transmission Date: 20100525
  Serious: No
  Sender: FDA-Public Use
  Company Number: WAES 0906USA03659

PATIENT
  Age: 25 Year
  Sex: Female
  Weight: 92.5338 kg

DRUGS (7)
  1. ISENTRESS [Suspect]
     Indication: HIV INFECTION
     Dosage: 400 MG/BID/PO
     Route: 048
     Dates: start: 20090409, end: 20090615
  2. INTELENCE [Suspect]
  3. TRUVADA [Suspect]
  4. KLONOPIN [Concomitant]
  5. TOPAMAX [Concomitant]
  6. LISINOPRIL [Concomitant]
  7. SERTRALINE HYDROCHLORIDE [Concomitant]

REACTIONS (8)
  - DYSPNOEA [None]
  - FATIGUE [None]
  - MOVEMENT DISORDER [None]
  - NAUSEA [None]
  - ORBITAL OEDEMA [None]
  - PAIN [None]
  - SKIN DISCOLOURATION [None]
  - SWELLING [None]
